FAERS Safety Report 8388401-0 (Version None)
Quarter: 2012Q2

REPORT INFORMATION
  Report Type: 
  Country: None (occurrence: None)
  Receive Date: 20120525
  Receipt Date: 20120514
  Transmission Date: 20120825
  Serious: Yes (Hospitalization, Other)
  Sender: FDA-Public Use
  Company Number: US-ELI_LILLY_AND_COMPANY-US201205000444

PATIENT
  Sex: Female
  Weight: 70.295 kg

DRUGS (27)
  1. CYMBALTA [Suspect]
     Dosage: 60 MG, QD
  2. ADVAIR DISKUS 100/50 [Concomitant]
     Dosage: UNK, UNKNOWN
  3. OMEPRAZOLE [Concomitant]
     Indication: ULCER
     Dosage: UNK, UNKNOWN
  4. TOPIRAMATE [Concomitant]
     Indication: MIGRAINE
     Dosage: UNK, UNKNOWN
  5. CYMBALTA [Suspect]
     Dosage: 90 MG, QD
     Route: 048
  6. XANAX [Concomitant]
     Dosage: UNK, UNKNOWN
  7. FUROSEMIDE [Concomitant]
     Indication: FLUID RETENTION
     Dosage: UNK, UNKNOWN
  8. SINGULAIR [Concomitant]
     Indication: ASTHMA
     Dosage: UNK, UNKNOWN
  9. COMBIVENT [Concomitant]
     Indication: ASTHMA
     Dosage: UNK, UNKNOWN
  10. FLONASE [Concomitant]
     Dosage: UNK, UNKNOWN
  11. KLOR-CON [Concomitant]
     Dosage: UNK, UNKNOWN
  12. THEOPHYLLINE [Concomitant]
     Indication: ASTHMA
     Dosage: UNK, UNKNOWN
  13. RECLAST [Concomitant]
     Indication: OSTEOPOROSIS
     Dosage: UNK, OTHER
  14. XANAX [Concomitant]
     Indication: ANXIETY
     Dosage: UNK, UNKNOWN
  15. PREDNISONE TAB [Concomitant]
     Dosage: UNK, UNKNOWN
     Dates: start: 20060101
  16. ALBUTEROL SULFATE [Concomitant]
     Indication: ASTHMA
     Dosage: UNK, UNKNOWN
  17. VERAPAMIL [Concomitant]
     Dosage: UNK, UNKNOWN
  18. ADVAIR DISKUS 100/50 [Concomitant]
     Indication: ASTHMA
     Dosage: UNK, BID
  19. CALCIUM [Concomitant]
  20. PREDNISONE TAB [Concomitant]
     Indication: ASTHMA
     Dosage: UNK, UNKNOWN
     Dates: start: 20060101
  21. TRICOR [Concomitant]
     Indication: BLOOD CHOLESTEROL INCREASED
     Dosage: UNK, UNKNOWN
  22. LYRICA [Concomitant]
     Dosage: UNK, UNKNOWN
  23. CYMBALTA [Suspect]
     Indication: GENERALISED ANXIETY DISORDER
     Dosage: 90 MG, QD
     Route: 048
  24. VITAMIN TAB [Concomitant]
     Dosage: UNK, UNKNOWN
  25. MAGNESIUM [Concomitant]
     Dosage: 500 MG, UNK
  26. DUONEB [Concomitant]
     Dosage: UNK, UNKNOWN
  27. CHOLECALCIFEROL [Concomitant]
     Indication: VITAMIN D DECREASED
     Dosage: 50000 IU, 3/W

REACTIONS (16)
  - ADDISON'S DISEASE [None]
  - VITAMIN B12 DEFICIENCY [None]
  - ANXIETY [None]
  - STAPHYLOCOCCAL INFECTION [None]
  - WEIGHT DECREASED [None]
  - DRUG INTOLERANCE [None]
  - MAJOR DEPRESSION [None]
  - OSTEOARTHRITIS [None]
  - INSOMNIA [None]
  - GASTRIC BYPASS [None]
  - DRUG INEFFECTIVE [None]
  - PNEUMONIA [None]
  - SEPSIS [None]
  - RIB FRACTURE [None]
  - OSTEOPOROSIS [None]
  - BLOOD PRESSURE INCREASED [None]
